FAERS Safety Report 4774662-3 (Version None)
Quarter: 2005Q3

REPORT INFORMATION
  Report Type: 
  Country: None (occurrence: None)
  Receive Date: 20050921
  Receipt Date: 20050609
  Transmission Date: 20060218
  Serious: Yes (Hospitalization)
  Sender: FDA-Public Use
  Company Number: US-MERCK-0506USA01846

PATIENT
  Age: 57 Year
  Sex: Female
  Weight: 105 kg

DRUGS (4)
  1. VIOXX [Suspect]
     Indication: ARTHRITIS
     Route: 048
     Dates: start: 20020101, end: 20030701
  2. VIOXX [Suspect]
     Route: 048
     Dates: start: 20030801
  3. HYDROCHLOROTHIAZIDE [Concomitant]
     Indication: HYPERTENSION
     Route: 065
     Dates: start: 20020101
  4. LISINOPRIL [Concomitant]
     Route: 065

REACTIONS (7)
  - ADENOMA BENIGN [None]
  - ANGINA UNSTABLE [None]
  - ANGIOLIPOMA [None]
  - CHOLELITHIASIS [None]
  - CORONARY ARTERY DISEASE [None]
  - MYOCARDIAL INFARCTION [None]
  - PHLEBOLITH [None]
